FAERS Safety Report 7067325-5 (Version None)
Quarter: 2010Q4

REPORT INFORMATION
  Report Type: 
  Country: None (occurrence: None)
  Receive Date: 20101022
  Receipt Date: 20101022
  Transmission Date: 20110411
  Serious: Yes (Life-Threatening, Hospitalization, Disabling)
  Sender: FDA-Public Use
  Company Number: None

PATIENT
  Age: 21 Year
  Sex: Male
  Weight: 70.5 kg

DRUGS (2)
  1. YASMIN [Suspect]
     Indication: OVARIAN CYST
     Dosage: 1X DAILY ORAL
     Route: 048
     Dates: start: 20031101
  2. YASMIN [Suspect]
     Indication: PROPHYLAXIS
     Dosage: 1X DAILY ORAL
     Route: 048
     Dates: start: 20031101

REACTIONS (3)
  - GALLBLADDER DISORDER [None]
  - GASTROOESOPHAGEAL REFLUX DISEASE [None]
  - WEIGHT DECREASED [None]
